FAERS Safety Report 7588498-1 (Version None)
Quarter: 2011Q3

REPORT INFORMATION
  Report Type: 
  Country: None (occurrence: None)
  Receive Date: 20110705
  Receipt Date: 20110628
  Transmission Date: 20111222
  Serious: Yes (Other)
  Sender: FDA-Public Use
  Company Number: US-PFIZER INC-2011144104

PATIENT
  Sex: Female
  Weight: 65.8 kg

DRUGS (3)
  1. DEPO-PROVERA [Suspect]
     Indication: CONTRACEPTION
     Dosage: UNK
     Dates: start: 20081001
  2. NEBIVOLOL [Suspect]
     Indication: TACHYCARDIA
     Dosage: UNK
     Dates: start: 20081101, end: 20080101
  3. NEBIVOLOL [Suspect]
     Indication: HEART RATE INCREASED
     Dosage: UNK
     Dates: start: 20110624

REACTIONS (14)
  - LUMBAR VERTEBRAL FRACTURE [None]
  - NAUSEA [None]
  - DIZZINESS [None]
  - CONCUSSION [None]
  - BONE MARROW OEDEMA [None]
  - STERNAL FRACTURE [None]
  - SPINAL COLUMN INJURY [None]
  - SPINAL OSTEOARTHRITIS [None]
  - BONE DENSITY ABNORMAL [None]
  - HEART RATE INCREASED [None]
  - ROAD TRAFFIC ACCIDENT [None]
  - CERVICAL VERTEBRAL FRACTURE [None]
  - WRIST FRACTURE [None]
  - SPINAL DEFORMITY [None]
